FAERS Safety Report 4988237-4 (Version None)
Quarter: 2006Q2

REPORT INFORMATION
  Report Type: 
  Country: None (occurrence: None)
  Receive Date: 20060425
  Receipt Date: 20060413
  Transmission Date: 20061013
  Serious: Yes (Life-Threatening, Hospitalization)
  Sender: FDA-Public Use
  Company Number: 2006051026

PATIENT
  Age: 52 Year
  Sex: Female
  Weight: 80 kg

DRUGS (2)
  1. AZULFIDINE [Suspect]
     Indication: RHEUMATOID ARTHRITIS
     Dosage: ORAL
     Route: 048
     Dates: start: 20060201, end: 20060101
  2. METHOTREXATE [Concomitant]

REACTIONS (10)
  - ANAEMIA [None]
  - ANGIONEUROTIC OEDEMA [None]
  - HAEMOLYSIS [None]
  - HEPATIC ENZYME INCREASED [None]
  - LUPUS-LIKE SYNDROME [None]
  - NEPHRITIC SYNDROME [None]
  - ORAL CANDIDIASIS [None]
  - RASH GENERALISED [None]
  - RENAL FAILURE ACUTE [None]
  - THROMBOCYTOPENIA [None]
